FAERS Safety Report 6474927-3 (Version None)
Quarter: 2009Q4

REPORT INFORMATION
  Report Type: 
  Country: None (occurrence: None)
  Receive Date: 20091204
  Receipt Date: 20091123
  Transmission Date: 20100525
  Serious: Yes (Other)
  Sender: FDA-Public Use
  Company Number: US-WATSON-2009-10061

PATIENT
  Sex: Female
  Weight: 75.283 kg

DRUGS (18)
  1. FENTANYL-50 [Suspect]
     Indication: NEUROPATHY PERIPHERAL
     Dosage: UNK
     Route: 062
     Dates: start: 20050101
  2. FENTANYL-50 [Suspect]
     Indication: RESTLESS LEGS SYNDROME
  3. FENTANYL-100 [Suspect]
     Indication: NEUROPATHY PERIPHERAL
     Dosage: 1 PATCH, Q 2 DAYS
     Route: 062
     Dates: start: 20091122
  4. FENTANYL-100 [Suspect]
     Indication: RESTLESS LEGS SYNDROME
     Dosage: 1 PATCH, Q 2 DAYS
     Route: 062
     Dates: start: 20091101, end: 20091122
  5. FENTANYL-100 [Suspect]
     Dosage: 1 PATCH, Q 2 DAYS
     Route: 062
     Dates: start: 20060101, end: 20091101
  6. METFORMIN HCL [Concomitant]
     Indication: DIABETES MELLITUS
     Dosage: 500 MG, DAILY
     Route: 048
  7. LISINOPRIL [Concomitant]
     Indication: HYPERTENSION
     Dosage: 10 MG, DAILY
     Route: 048
  8. ZAROXOLYN [Concomitant]
     Indication: DRUG USE FOR UNKNOWN INDICATION
     Dosage: 2.5 MG, DAILY
     Route: 048
  9. LOVASTATIN [Concomitant]
     Indication: BLOOD CHOLESTEROL INCREASED
     Dosage: 20 MG, DAILY
     Route: 048
  10. AMITRIPTYLINE [Concomitant]
     Indication: SLEEP DISORDER
     Dosage: 150 MG, QHS
     Route: 048
  11. XANAX [Concomitant]
     Indication: DRUG USE FOR UNKNOWN INDICATION
     Dosage: 1 MG, UP TO 4 DAILY,  PRN
     Route: 048
  12. PREVACID [Concomitant]
     Indication: DRUG USE FOR UNKNOWN INDICATION
     Dosage: 30 MG, DAILY
     Route: 048
  13. VICODIN [Concomitant]
     Indication: PAIN
     Dosage: 500 MG, FOUR IF NEEDED,  PRN PAIN
     Route: 048
  14. HYDROXYZINE [Concomitant]
     Indication: PRURITUS
     Dosage: 50 MG, Q4-6H, PRN ITCHING
     Route: 048
  15. CILOSTAZOL [Concomitant]
     Indication: DRUG USE FOR UNKNOWN INDICATION
     Dosage: 100 MG, BEFORE BREAKFAST AND DINNER
     Route: 048
  16. TRIAMTERENE AND HYDROCHLOROTHIAZIDE [Concomitant]
     Indication: DRUG USE FOR UNKNOWN INDICATION
     Dosage: 37.5/25 MG DAILY
     Route: 048
  17. ZYRTEC [Concomitant]
     Indication: URTICARIA
     Dosage: 10 MG, DAILY
     Route: 048
  18. SYNTHROID [Concomitant]
     Indication: DRUG USE FOR UNKNOWN INDICATION
     Dosage: 1 TABLET, DAILY
     Route: 048

REACTIONS (9)
  - CONVULSION [None]
  - DYSKINESIA [None]
  - DYSPNOEA [None]
  - HEADACHE [None]
  - HYPERHIDROSIS [None]
  - INAPPROPRIATE SCHEDULE OF DRUG ADMINISTRATION [None]
  - PAIN [None]
  - PAIN IN EXTREMITY [None]
  - PARAESTHESIA [None]
